FAERS Safety Report 10345755 (Version 1)
Quarter: 2014Q3

REPORT INFORMATION
  Report Type: Spontaneous
  Country: US (occurrence: US)
  Receive Date: 20140728
  Receipt Date: 20140728
  Transmission Date: 20150326
  Serious: Yes (Hospitalization, Other)
  Sender: FDA-Public Use
  Company Number: GXBR2014US001659

PATIENT
  Sex: Male

DRUGS (11)
  1. NAVANE [Suspect]
     Active Substance: THIOTHIXENE
     Dosage: UNK DF, UNK
  2. DEPAKOTE [Suspect]
     Active Substance: DIVALPROEX SODIUM
     Dosage: UNK DF, UNK
  3. ABILIFY [Suspect]
     Active Substance: ARIPIPRAZOLE
     Dosage: UNK DF, UNK
  4. LISINOPRIL. [Suspect]
     Active Substance: LISINOPRIL
     Dosage: UNK DF, UNK
  5. CHLORPROMAZINE HCL TABLETS USP [Suspect]
     Active Substance: CHLORPROMAZINE
     Indication: SCHIZOPHRENIA
     Dosage: UNK DF, UNK
  6. HALDOL [Suspect]
     Active Substance: HALOPERIDOL
     Dosage: UNK DF, UNK
  7. GEODON [Suspect]
     Active Substance: ZIPRASIDONE HYDROCHLORIDE\ZIPRASIDONE MESYLATE
     Dosage: UNK DF, UNK
  8. METFORMIN [Suspect]
     Active Substance: METFORMIN HYDROCHLORIDE
     Dosage: UNK DF, UNK
  9. RISPERDAL [Suspect]
     Active Substance: RISPERIDONE
     Dosage: UNK DF, UNK
  10. LATUDA [Suspect]
     Active Substance: LURASIDONE HYDROCHLORIDE
     Dosage: UNK DF, UNK
  11. ZYPREXA [Suspect]
     Active Substance: OLANZAPINE
     Dosage: UNK DF, UNK

REACTIONS (10)
  - Hypertension [Unknown]
  - Type 2 diabetes mellitus [Not Recovered/Not Resolved]
  - Cardiac disorder [Unknown]
  - Cardiac murmur [Unknown]
  - Anaemia [Unknown]
  - Condition aggravated [Unknown]
  - Gastric ulcer [Unknown]
  - Hyperglycaemia [Unknown]
  - Retinal haemorrhage [Unknown]
  - Immunodeficiency [Unknown]

NARRATIVE: CASE EVENT DATE: 1997
